FAERS Safety Report 8121559-7 (Version None)
Quarter: 2012Q1

REPORT INFORMATION
  Report Type: 
  Country: None (occurrence: None)
  Receive Date: 20120203
  Receipt Date: 20120125
  Transmission Date: 20120608
  Serious: Yes (Hospitalization)
  Sender: FDA-Public Use
  Company Number: AUR-APL-2012-00680

PATIENT
  Age: 85 Year
  Sex: Female
  Weight: 69 kg

DRUGS (11)
  1. ALENDRONIC ACID (ALENDRONIC ACID) [Suspect]
     Indication: OSTEOPOROSIS
     Dosage: 10 MG (70 MG, 1 IN 1 WK), ORAL
     Route: 048
     Dates: start: 20120101
  2. PROCHLORPEMAZINE (PROCHLORPERAZINE) [Concomitant]
  3. CARBOCISTEINE (CARBOCISTEINE) [Concomitant]
  4. ENOXAPARIN SODIUM [Concomitant]
  5. FLUTICASONE PROPIONATE/SALMETEROL [Concomitant]
  6. ADCAL-D3 (LEKOVIT CA) [Concomitant]
  7. DIPYRIDAMOLE [Concomitant]
  8. ALBUTEROL SULFATE [Concomitant]
  9. PREDNISOLONE [Concomitant]
  10. TIOTROPIUM BROMID (TIOTROPIUM BROMIDE) [Concomitant]
  11. LEVOTHYROXINE SODIUM [Concomitant]

REACTIONS (4)
  - FALL [None]
  - UPPER GASTROINTESTINAL HAEMORRHAGE [None]
  - OESOPHAGEAL ULCER HAEMORRHAGE [None]
  - PELVIC FRACTURE [None]
